FAERS Safety Report 4911408-X (Version None)
Quarter: 2006Q1

REPORT INFORMATION
  Report Type: 
  Country: None (occurrence: None)
  Receive Date: 20060113
  Receipt Date: 20051109
  Transmission Date: 20060701
  Serious: No
  Sender: FDA-Public Use
  Company Number: 2005SP003886

PATIENT
  Age: 70 Year
  Sex: Female
  Weight: 99.7913 kg

DRUGS (2)
  1. LUNESTA [Suspect]
     Dosage: 3 MG; ORAL
     Route: 048
     Dates: start: 20050101, end: 20050101
  2. LUNESTA [Suspect]
     Dosage: 3 MG; ORAL
     Route: 048
     Dates: start: 20051105

REACTIONS (3)
  - DRUG INEFFECTIVE [None]
  - FALL [None]
  - INITIAL INSOMNIA [None]
